FAERS Safety Report 9974506 (Version 1)
Quarter: 2014Q1

REPORT INFORMATION
  Report Type: Report from Study
  Country: US (occurrence: US)
  Receive Date: 20140306
  Receipt Date: 20140306
  Transmission Date: 20141002
  Serious: No
  Sender: FDA-Public Use
  Company Number: US-ABBVIE-13P-163-1157366-00

PATIENT
  Age: 48 Year
  Sex: Female
  Weight: 74.91 kg

DRUGS (14)
  1. HUMIRA [Suspect]
     Indication: RHEUMATOID ARTHRITIS
     Route: 058
     Dates: start: 201302, end: 201307
  2. METHOTREXATE [Concomitant]
     Indication: RHEUMATOID ARTHRITIS
  3. FELDENE [Concomitant]
     Indication: RHEUMATOID ARTHRITIS
  4. FOLIC ACID [Concomitant]
     Indication: RHEUMATOID ARTHRITIS
  5. FISH OIL [Concomitant]
     Indication: VITAMIN SUPPLEMENTATION
  6. UNKNOWN MEDICATION [Concomitant]
     Indication: CONSTIPATION PROPHYLAXIS
     Dosage: OTC
  7. BENEFIBER FIBER SUPPLEMENT [Concomitant]
     Indication: VITAMIN SUPPLEMENTATION
  8. ZESTORETIC [Concomitant]
     Indication: HYPERTENSION
  9. PREVACID [Concomitant]
     Indication: GASTROOESOPHAGEAL REFLUX DISEASE
  10. XANAX [Concomitant]
     Indication: ANXIETY
  11. ULTRAM [Concomitant]
     Indication: RHEUMATOID ARTHRITIS
  12. TYLENOL WITH CODEIN #3 [Concomitant]
     Indication: RHEUMATOID ARTHRITIS
  13. NEURONTIN [Concomitant]
     Indication: NEUROPATHY PERIPHERAL
  14. PREDNISONE [Concomitant]
     Indication: RHEUMATOID ARTHRITIS

REACTIONS (1)
  - Injection site reaction [Recovered/Resolved]
